FAERS Safety Report 10784703 (Version 2)
Quarter: 2016Q2

REPORT INFORMATION
  Report Type: Spontaneous
  Country: US (occurrence: US)
  Receive Date: 20150211
  Receipt Date: 20160404
  Transmission Date: 20160815
  Serious: Yes (Hospitalization)
  Sender: FDA-Public Use
  Company Number: US-CELGENEUS-USA-2015014816

PATIENT
  Age: 78 Year
  Sex: Female
  Weight: 83.54 kg

DRUGS (5)
  1. VELCADE [Concomitant]
     Active Substance: BORTEZOMIB
     Indication: PLASMA CELL MYELOMA
     Route: 065
     Dates: start: 20130801, end: 20150718
  2. MORPHINE [Concomitant]
     Active Substance: MORPHINE
     Indication: PAIN
     Route: 065
     Dates: start: 20130726, end: 20150102
  3. MS CONTIN [Concomitant]
     Active Substance: MORPHINE SULFATE
     Indication: PAIN
     Route: 048
     Dates: start: 20130423, end: 20151223
  4. REVLIMID [Suspect]
     Active Substance: LENALIDOMIDE
     Indication: PLASMA CELL MYELOMA
     Dosage: 5 MILLIGRAM
     Route: 048
     Dates: start: 20140814, end: 20150604
  5. DEXAMETHASONE. [Suspect]
     Active Substance: DEXAMETHASONE
     Indication: PLASMA CELL MYELOMA
     Route: 065
     Dates: start: 20130320, end: 20151125

REACTIONS (2)
  - Pneumonia [Recovered/Resolved]
  - Fluid retention [Recovered/Resolved]

NARRATIVE: CASE EVENT DATE: 20141227
